FAERS Safety Report 9521864 (Version 2)
Quarter: 2013Q4

REPORT INFORMATION
  Report Type: Spontaneous
  Country: US (occurrence: US)
  Receive Date: 20130913
  Receipt Date: 20131004
  Transmission Date: 20140711
  Serious: Yes (Other)
  Sender: FDA-Public Use
  Company Number: US-ELI_LILLY_AND_COMPANY-US201309000868

PATIENT
  Age: 48 Year
  Sex: Male

DRUGS (2)
  1. HUMALOG LISPRO [Suspect]
     Indication: DIABETES MELLITUS
     Dosage: 10 U, TID
     Dates: start: 2005
  2. HUMALOG LISPRO [Suspect]
     Dosage: 10 U, TID

REACTIONS (5)
  - Glaucoma [Unknown]
  - Diplopia [Unknown]
  - Blood glucose increased [Unknown]
  - Blood glucose increased [Unknown]
  - Hunger [Unknown]
